FAERS Safety Report 5893342-4 (Version None)
Quarter: 2008Q3

REPORT INFORMATION
  Report Type: 
  Country: None (occurrence: None)
  Receive Date: 20080922
  Receipt Date: 20080922
  Transmission Date: 20090109
  Serious: Yes (Other)
  Sender: FDA-Public Use
  Company Number: None

PATIENT
  Age: 83 Year
  Sex: Female
  Weight: 73.4827 kg

DRUGS (1)
  1. MIOSTAT [Suspect]
     Indication: MIOSIS
     Dosage: 0.5 ML ONCE INTRAOCULAR
     Route: 031
     Dates: start: 20080602, end: 20080909

REACTIONS (2)
  - INFLAMMATION [None]
  - POST PROCEDURAL COMPLICATION [None]
